FAERS Safety Report 6382687-X (Version None)
Quarter: 2009Q3

REPORT INFORMATION
  Report Type: 
  Country: None (occurrence: None)
  Receive Date: 20090930
  Receipt Date: 20090917
  Transmission Date: 20100115
  Serious: Yes (Hospitalization)
  Sender: FDA-Public Use
  Company Number: US-CELGENEUS-163-21880-09072371

PATIENT
  Sex: Male

DRUGS (5)
  1. REVLIMID [Suspect]
     Indication: MULTIPLE MYELOMA
     Route: 048
     Dates: start: 20090619, end: 20090701
  2. REVLIMID [Suspect]
     Route: 048
     Dates: start: 20090601
  3. REVLIMID [Suspect]
     Route: 048
     Dates: start: 20090801
  4. DAPSONE [Suspect]
     Route: 048
     Dates: start: 20090615, end: 20090722
  5. TRANSFUSION [Concomitant]
     Indication: DRUG USE FOR UNKNOWN INDICATION
     Route: 051
     Dates: start: 20090701, end: 20090701

REACTIONS (4)
  - DYSPNOEA [None]
  - HYPOXIA [None]
  - METHAEMOGLOBINAEMIA [None]
  - NEUROPATHY PERIPHERAL [None]
